FAERS Safety Report 8586623-7 (Version None)
Quarter: 2012Q3

REPORT INFORMATION
  Report Type: 
  Country: None (occurrence: None)
  Receive Date: 20120810
  Receipt Date: 20120803
  Transmission Date: 20120928
  Serious: Yes (Hospitalization)
  Sender: FDA-Public Use
  Company Number: US-ABBOTT-12P-163-0949848-00

PATIENT
  Sex: Male
  Weight: 76.726 kg

DRUGS (4)
  1. HUMIRA [Suspect]
     Indication: CROHN'S DISEASE
  2. XANAX [Concomitant]
     Indication: ANXIETY
  3. UNKNOWN ANXIETY MEDICATION [Suspect]
     Indication: ANXIETY
  4. SOTALOL HCL [Concomitant]
     Indication: ATRIAL FIBRILLATION

REACTIONS (4)
  - PANIC ATTACK [None]
  - FEELING ABNORMAL [None]
  - TACHYPHRENIA [None]
  - DIZZINESS [None]
